FAERS Safety Report 19834170 (Version 17)
Quarter: 2022Q4

REPORT INFORMATION
  Report Type: Report from Study
  Country: US (occurrence: US)
  Receive Date: 20210915
  Receipt Date: 20221221
  Transmission Date: 20230113
  Serious: Yes (Hospitalization, Other)
  Sender: FDA-Public Use
  Company Number: NVSC2021US207995

PATIENT
  Age: 48 Year
  Sex: Female
  Weight: 70.295 kg

DRUGS (14)
  1. TREPROSTINIL [Suspect]
     Active Substance: TREPROSTINIL
     Indication: Pulmonary arterial hypertension
     Dosage: 125 NG/KG/MIN, CONT
     Route: 058
     Dates: start: 20210902
  2. TREPROSTINIL [Suspect]
     Active Substance: TREPROSTINIL
     Dosage: 109 NG/KG/MIN, CONT
     Route: 058
  3. TREPROSTINIL [Suspect]
     Active Substance: TREPROSTINIL
     Dosage: 167 NG/KG/MIN, CONT
     Route: 058
  4. TREPROSTINIL [Suspect]
     Active Substance: TREPROSTINIL
     Dosage: 151 NG/KG/MIN, CONT
     Route: 058
  5. TREPROSTINIL [Suspect]
     Active Substance: TREPROSTINIL
     Dosage: 167 NG/KG/MIN, CONT
     Route: 058
  6. TREPROSTINIL [Suspect]
     Active Substance: TREPROSTINIL
     Dosage: 167 NG/KG/MIN, CONT
     Route: 058
  7. LETAIRIS [Concomitant]
     Active Substance: AMBRISENTAN
     Indication: Pulmonary arterial hypertension
     Dosage: UNK
     Route: 065
  8. REMODULIN [Concomitant]
     Active Substance: TREPROSTINIL
     Indication: Pulmonary arterial hypertension
     Dosage: UNK
     Route: 065
  9. ADCIRCA [Concomitant]
     Active Substance: TADALAFIL
     Indication: Pulmonary arterial hypertension
     Dosage: UNK
     Route: 065
  10. XARELTO [Concomitant]
     Active Substance: RIVAROXABAN
     Indication: Product used for unknown indication
     Dosage: UNK
     Route: 065
  11. ADEMPAS [Concomitant]
     Active Substance: RIOCIGUAT
     Indication: Product used for unknown indication
     Dosage: 1.5 MG
     Route: 065
  12. FOLIC ACID [Concomitant]
     Active Substance: FOLIC ACID
     Indication: Product used for unknown indication
     Dosage: UNK
     Route: 065
  13. VITAMIN B12 [Concomitant]
     Active Substance: CYANOCOBALAMIN
     Indication: Product used for unknown indication
     Dosage: UNK
     Route: 065
  14. AMBRISENTAN [Concomitant]
     Active Substance: AMBRISENTAN
     Indication: Product used for unknown indication
     Dosage: UNK
     Route: 065

REACTIONS (25)
  - Haematemesis [Unknown]
  - Oesophageal ulcer [Unknown]
  - Haematochezia [Unknown]
  - Malaise [Unknown]
  - Road traffic accident [Unknown]
  - Contusion [Unknown]
  - Insomnia [Unknown]
  - Nasopharyngitis [Unknown]
  - Productive cough [Unknown]
  - Sinus headache [Unknown]
  - Haemoptysis [Unknown]
  - Faeces discoloured [Unknown]
  - Seasonal allergy [Not Recovered/Not Resolved]
  - Anosmia [Unknown]
  - Illness [Unknown]
  - COVID-19 [Unknown]
  - Dyspnoea [Unknown]
  - Abdominal discomfort [Unknown]
  - Vomiting [Unknown]
  - Head discomfort [Unknown]
  - Fine motor skill dysfunction [Unknown]
  - Hypotension [Unknown]
  - Dizziness [Unknown]
  - Injection site pain [Not Recovered/Not Resolved]
  - Injection site erythema [Not Recovered/Not Resolved]

NARRATIVE: CASE EVENT DATE: 20220201
